FAERS Safety Report 12639081 (Version 2)
Quarter: 2018Q2

REPORT INFORMATION
  Report Type: Spontaneous
  Country: US (occurrence: US)
  Receive Date: 20160809
  Receipt Date: 20180524
  Transmission Date: 20180711
  Serious: Yes (Other)
  Sender: FDA-Public Use
  Company Number: US-JNJFOC-20160803513

PATIENT

DRUGS (4)
  1. PARACETAMOL [Suspect]
     Active Substance: ACETAMINOPHEN
     Indication: SUICIDE ATTEMPT
     Route: 048
  2. VALPROIC ACID. [Suspect]
     Active Substance: VALPROIC ACID
     Indication: SUICIDE ATTEMPT
     Route: 048
  3. PARACETAMOL [Suspect]
     Active Substance: ACETAMINOPHEN
     Route: 048
  4. METHOTREXATE. [Suspect]
     Active Substance: METHOTREXATE
     Indication: SUICIDE ATTEMPT
     Route: 065

REACTIONS (2)
  - Hepatotoxicity [Unknown]
  - Intentional overdose [Unknown]
